FAERS Safety Report 24958323 (Version 1)
Quarter: 2025Q1

REPORT INFORMATION
  Report Type: Spontaneous
  Country: FR (occurrence: FR)
  Receive Date: 20250212
  Receipt Date: 20250212
  Transmission Date: 20250409
  Serious: Yes (Hospitalization, Other)
  Sender: AUROBINDO
  Company Number: FR-AFSSAPS-GR2025000116

PATIENT
  Age: 50 Year
  Sex: Male

DRUGS (1)
  1. PANTOPRAZOLE [Suspect]
     Active Substance: PANTOPRAZOLE
     Indication: Prophylaxis against gastrointestinal ulcer
     Dosage: 20 MILLIGRAM, ONCE A DAY
     Route: 048
     Dates: start: 20241216, end: 20250103

REACTIONS (1)
  - Cholestasis [Recovered/Resolved with Sequelae]

NARRATIVE: CASE EVENT DATE: 20241220
